FAERS Safety Report 6029504-5 (Version None)
Quarter: 2009Q1

REPORT INFORMATION
  Report Type: 
  Country: None (occurrence: None)
  Receive Date: 20090106
  Receipt Date: 20081224
  Transmission Date: 20090719
  Serious: Yes (Other)
  Sender: FDA-Public Use
  Company Number: JP-PFIZER INC-2009151406

PATIENT

DRUGS (2)
  1. CABASER [Suspect]
     Dates: start: 20080922, end: 20080925
  2. SOMAVERT [Concomitant]
     Route: 058
     Dates: start: 20080529

REACTIONS (1)
  - NERVOUS SYSTEM DISORDER [None]
